FAERS Safety Report 21499484 (Version 1)
Quarter: 2022Q4

REPORT INFORMATION
  Report Type: Spontaneous
  Country: RU (occurrence: RU)
  Receive Date: 20221024
  Receipt Date: 20221024
  Transmission Date: 20230113
  Serious: Yes (Other)
  Sender: FDA-Public Use
  Company Number: RU-AMERICAN REGENT INC-2022003025

PATIENT
  Age: 20 Year
  Sex: Female
  Weight: 80 kg

DRUGS (3)
  1. VENOFER [Suspect]
     Active Substance: IRON SUCROSE
     Indication: Anaemia
     Dosage: 100 MILLIGRAM (20 MG/5ML)
     Dates: start: 20221004, end: 20221004
  2. AMOXICILLIN\CLAVULANIC ACID [Suspect]
     Active Substance: AMOXICILLIN\CLAVULANIC ACID
     Indication: Leukocytosis
     Dosage: 1.2 GRAM
     Dates: start: 20221004, end: 20221004
  3. OXYTOCIN [Suspect]
     Active Substance: OXYTOCIN
     Indication: Uterine contractions abnormal
     Dosage: 5 INTERNATIONAL UNIT, BID (2 IN 1D)
     Route: 030
     Dates: start: 20221002, end: 20221004

REACTIONS (2)
  - Rash [Recovered/Resolved]
  - Pruritus [Recovered/Resolved]

NARRATIVE: CASE EVENT DATE: 20221004
